FAERS Safety Report 23276752 (Version 1)
Quarter: 2023Q4

REPORT INFORMATION
  Report Type: Report from Study
  Country: US (occurrence: US)
  Receive Date: 20231208
  Receipt Date: 20231208
  Transmission Date: 20240110
  Serious: Yes (Hospitalization, Other)
  Sender: FDA-Public Use
  Company Number: US-BAYER-2023A170644

PATIENT
  Age: 53 Year
  Sex: Female
  Weight: 60.7 kg

DRUGS (2)
  1. COPANLISIB [Suspect]
     Active Substance: COPANLISIB
     Indication: Triple negative breast cancer
     Dosage: 45 MG
     Dates: start: 20231017, end: 20231106
  2. ERIBULIN MESYLATE [Suspect]
     Active Substance: ERIBULIN MESYLATE
     Indication: Triple negative breast cancer
     Dosage: 1.78 MG
     Dates: start: 20231017, end: 20231106

REACTIONS (5)
  - Lymphocyte count decreased [None]
  - Neutrophil count decreased [None]
  - White blood cell count decreased [None]
  - Pyrexia [None]
  - Anaemia [None]

NARRATIVE: CASE EVENT DATE: 20231106
